FAERS Safety Report 7466771-5 (Version None)
Quarter: 2011Q2

REPORT INFORMATION
  Report Type: 
  Country: None (occurrence: None)
  Receive Date: 20110505
  Receipt Date: 20110505
  Transmission Date: 20111010
  Serious: Yes (Other)
  Sender: FDA-Public Use
  Company Number: None

PATIENT
  Sex: Female
  Weight: 78.9259 kg

DRUGS (1)
  1. MS CONTIN [Suspect]
     Indication: PAIN
     Dosage: 60MG ONE PO Q 8 HOURS
     Route: 048
     Dates: end: 20100621

REACTIONS (1)
  - RASH [None]
